FAERS Safety Report 9673664 (Version 2)
Quarter: 2013Q4

REPORT INFORMATION
  Report Type: Spontaneous
  Country: US (occurrence: US)
  Receive Date: 20131106
  Receipt Date: 20131106
  Transmission Date: 20140711
  Serious: No
  Sender: FDA-Public Use
  Company Number: US-AMGEN-USASP2013070156

PATIENT
  Age: 23 Year
  Sex: Male
  Weight: 80.27 kg

DRUGS (4)
  1. ENBREL [Suspect]
     Indication: ANKYLOSING SPONDYLITIS
     Dosage: 50 MG, QWK
     Route: 058
     Dates: start: 20130610, end: 20131003
  2. VITAMIN D2 [Concomitant]
     Dosage: 4000 UNIT, UNK
  3. LAMICTAL [Concomitant]
     Dosage: 100 MG, UNK, LAMICTAL XR
  4. TYLENOL ARTHRITIS [Concomitant]
     Dosage: 650 MG, UNK

REACTIONS (2)
  - Cough [Recovering/Resolving]
  - Oropharyngeal pain [Unknown]
